FAERS Safety Report 9055520 (Version 3)
Quarter: 2014Q4

REPORT INFORMATION
  Report Type: Report from Study
  Country: HU (occurrence: HU)
  Receive Date: 20130206
  Receipt Date: 20141007
  Transmission Date: 20150529
  Serious: Yes (Death, Other)
  Sender: FDA-Public Use
  Company Number: HU-GLAXOSMITHKLINE-B0852343A

PATIENT
  Age: 68 Year
  Sex: Female

DRUGS (4)
  1. XELODA [Suspect]
     Active Substance: CAPECITABINE
     Indication: HER-2 POSITIVE BREAST CANCER
     Dosage: 500MG
     Route: 065
     Dates: start: 201207, end: 201212
  2. TYKERB [Suspect]
     Active Substance: LAPATINIB DITOSYLATE
     Indication: HER-2 POSITIVE BREAST CANCER
     Dosage: 250MG
     Dates: start: 201207, end: 201212
  3. BONDRONAT [Concomitant]
     Active Substance: IBANDRONIC ACID
     Indication: METASTASES TO BONE
     Dates: start: 2012, end: 20121130
  4. MEGESTROL ACETATE. [Concomitant]
     Active Substance: MEGESTROL ACETATE
     Indication: ENDOCRINE DISORDER
     Dates: start: 2012, end: 20121130

REACTIONS (9)
  - Cachexia [Fatal]
  - Diarrhoea [Recovered/Resolved]
  - Metastasis [Unknown]
  - Rhinorrhoea [Unknown]
  - Epistaxis [Unknown]
  - Nodule [Not Recovered/Not Resolved]
  - Metastases to central nervous system [Unknown]
  - Wound [Unknown]
  - Lacrimation increased [Unknown]

NARRATIVE: CASE EVENT DATE: 201208
